FAERS Safety Report 20924206 (Version 1)
Quarter: 2022Q2

REPORT INFORMATION
  Report Type: Spontaneous
  Country: US (occurrence: None)
  Receive Date: 20220606
  Receipt Date: 20220606
  Transmission Date: 20220721
  Serious: No
  Sender: FDA-Public Use
  Company Number: None

PATIENT
  Age: 46 Year
  Sex: Female

DRUGS (1)
  1. HERPECIN [Suspect]
     Active Substance: DIMETHICONE\MERADIMATE\OCTINOXATE\OCTISALATE\OXYBENZONE
     Indication: Oral herpes
     Dates: start: 20220602, end: 20220604

REACTIONS (5)
  - Influenza like illness [None]
  - Cheilitis [None]
  - Lip pain [None]
  - Skin weeping [None]
  - Bloody discharge [None]

NARRATIVE: CASE EVENT DATE: 20220603
